FAERS Safety Report 8139837-4 (Version None)
Quarter: 2012Q1

REPORT INFORMATION
  Report Type: 
  Country: None (occurrence: None)
  Receive Date: 20120215
  Receipt Date: 20120208
  Transmission Date: 20120608
  Serious: Yes (Other)
  Sender: FDA-Public Use
  Company Number: US-CELGENEUS-163-21880-11012149

PATIENT
  Sex: Male

DRUGS (7)
  1. REVLIMID [Suspect]
     Dosage: 15 MILLIGRAM
     Route: 048
     Dates: start: 20110128, end: 20110501
  2. ACYCLOVIR [Concomitant]
     Dosage: 400 MILLIGRAM
     Route: 048
  3. REVLIMID [Suspect]
     Indication: MULTIPLE MYELOMA
     Dosage: 25 MILLIGRAM
     Route: 048
     Dates: start: 20101213, end: 20110128
  4. DOXAZOSIN [Concomitant]
     Dosage: 2 MILLIGRAM
     Route: 048
  5. ZOLPIDEM [Concomitant]
     Dosage: 10 MILLIGRAM
     Route: 048
  6. DEXAMETHASONE [Concomitant]
     Dosage: 8 MILLIGRAM
     Route: 048
  7. REVLIMID [Suspect]
     Dosage: 15 MILLIGRAM
     Route: 048
     Dates: start: 20110901

REACTIONS (4)
  - VASCULAR DEMENTIA [None]
  - RASH GENERALISED [None]
  - FATIGUE [None]
  - ASTHENIA [None]
